FAERS Safety Report 5714236-0 (Version None)
Quarter: 2008Q2

REPORT INFORMATION
  Report Type: 
  Country: None (occurrence: None)
  Receive Date: 20080423
  Receipt Date: 20071120
  Transmission Date: 20081010
  Serious: No
  Sender: FDA-Public Use
  Company Number: US-KINGPHARMUSA00001-K200701500

PATIENT

DRUGS (8)
  1. SKELAXIN [Suspect]
     Indication: COMPLEX REGIONAL PAIN SYNDROME
     Dosage: 800 MG,1-3 TABLETS PRN QD
     Route: 048
     Dates: start: 20020101
  2. SKELAXIN [Suspect]
     Indication: TORTICOLLIS
  3. ZYDONE [Suspect]
     Indication: COMPLEX REGIONAL PAIN SYNDROME
     Dosage: 10/400 MG ,2 TABLETS 5 TIMES QD
     Route: 048
     Dates: start: 20010101
  4. ZYDONE [Suspect]
     Indication: TORTICOLLIS
  5. NORTRIPTYLINE HCL [Suspect]
     Indication: COMPLEX REGIONAL PAIN SYNDROME
     Dosage: 25 MG, 1- 3 TABLETS PRN QD
     Route: 048
     Dates: start: 20020101
  6. NORTRIPTYLINE HCL [Suspect]
     Indication: TORTICOLLIS
  7. ACIPHEX [Concomitant]
     Indication: GASTROOESOPHAGEAL REFLUX DISEASE
     Dosage: 20 MG, 1 TABLET QD
     Route: 048
     Dates: start: 20010101
  8. HORMONES AND RELATED AGENTS [Concomitant]
     Indication: HORMONE REPLACEMENT THERAPY
     Dosage: .5 MG, BIW
     Route: 062

REACTIONS (1)
  - DRUG INEFFECTIVE [None]
